FAERS Safety Report 5295273-X (Version None)
Quarter: 2007Q2

REPORT INFORMATION
  Report Type: 
  Country: None (occurrence: None)
  Receive Date: 20070412
  Receipt Date: 20070404
  Transmission Date: 20071010
  Serious: Yes (Hospitalization)
  Sender: FDA-Public Use
  Company Number: JP-ABBOTT-07P-087-0364199-00

PATIENT
  Age: 15 Month
  Sex: Male

DRUGS (1)
  1. CEFDINIR [Suspect]
     Indication: PYREXIA
     Dosage: UNKNOWN
     Route: 065

REACTIONS (2)
  - HAEMOLYTIC URAEMIC SYNDROME [None]
  - INTUSSUSCEPTION [None]
